FAERS Safety Report 5135907-3 (Version None)
Quarter: 2006Q4

REPORT INFORMATION
  Report Type: 
  Country: None (occurrence: None)
  Receive Date: 20061020
  Receipt Date: 20061010
  Transmission Date: 20070319
  Serious: Yes (Life-Threatening, Hospitalization)
  Sender: FDA-Public Use
  Company Number: 112294ISR

PATIENT
  Age: 57 Year
  Sex: Female

DRUGS (6)
  1. METHOTREXATE [Suspect]
     Indication: RHEUMATOID ARTHRITIS
     Dosage: 2.5 MG, ONCE A WEEK
     Dates: start: 20031117, end: 20060312
  2. FOLIC ACID [Concomitant]
  3. GLUCOSAMINE SULFATE [Concomitant]
  4. FISH OIL [Concomitant]
  5. ZOPICLONE [Concomitant]
  6. AMITRIPTYLINE HCL [Concomitant]

REACTIONS (2)
  - MALIGNANT MELANOMA [None]
  - SKIN GRAFT [None]
